FAERS Safety Report 9067467 (Version 6)
Quarter: 2014Q1

REPORT INFORMATION
  Report Type: Spontaneous
  Country: GB (occurrence: GB)
  Receive Date: 20130129
  Receipt Date: 20140305
  Transmission Date: 20141002
  Serious: Yes (Hospitalization, Other)
  Sender: FDA-Public Use
  Company Number: PHFR2013GB000880

PATIENT
  Age: 69 Year
  Sex: Male

DRUGS (13)
  1. CLOZARIL [Suspect]
     Indication: SCHIZOPHRENIA
     Dosage: UNK
     Route: 048
     Dates: start: 20040422
  2. CLOZARIL [Suspect]
     Dosage: 200 MG, BID
     Route: 048
  3. SERTRALINE [Concomitant]
     Dosage: 50 MG, QD
  4. ASPIRIN [Concomitant]
     Dosage: UNK UKN, UNK
  5. TINZAPARIN [Concomitant]
     Dosage: UNK UKN, UNK
  6. SIMVASTATIN [Concomitant]
     Dosage: UNK UKN, UNK
  7. PARACETAMOL [Concomitant]
     Dosage: UNK UKN, UNK
  8. MOVICOL [Concomitant]
     Dosage: UNK
  9. UNIPHYLLIN [Concomitant]
     Dosage: UNK
  10. OMEPRAZOLE [Concomitant]
     Dosage: UNK UKN, UNK
  11. MEBEVERINE [Concomitant]
     Dosage: UNK UKN, UNK
  12. RANITIDINE [Concomitant]
     Dosage: UNK UKN, UNK
  13. FLUDROCORTISONE [Concomitant]
     Dosage: UNK

REACTIONS (8)
  - Gait disturbance [Recovering/Resolving]
  - Urinary tract infection [Recovered/Resolved]
  - White blood cell count increased [Recovered/Resolved]
  - C-reactive protein increased [Recovering/Resolving]
  - Sepsis [Recovering/Resolving]
  - Dizziness [Recovering/Resolving]
  - Neutrophil count increased [Recovered/Resolved]
  - Left ventricular dysfunction [Unknown]
